FAERS Safety Report 4401031-8 (Version None)
Quarter: 2004Q3

REPORT INFORMATION
  Report Type: 
  Country: None (occurrence: None)
  Receive Date: 20040907
  Receipt Date: 20030926
  Transmission Date: 20050211
  Serious: No
  Sender: FDA-Public Use
  Company Number: US-BRISTOL-MYERS SQUIBB COMPANY-12395539

PATIENT
  Age: 73 Year
  Sex: Male
  Weight: 91 kg

DRUGS (6)
  1. COUMADIN [Suspect]
     Indication: CEREBROVASCULAR ACCIDENT
     Dosage: DOSE VARIED BETWEEN 8 MG AND 10 MG
     Dates: start: 20030201
  2. DILANTIN [Concomitant]
  3. VALPROIC ACID [Concomitant]
  4. BLOOD PRESSURE MEDICATION [Concomitant]
  5. DIURETIC [Concomitant]
  6. ANTIPSYCHOTIC [Concomitant]

REACTIONS (1)
  - INTERNATIONAL NORMALISED RATIO DECREASED [None]
